FAERS Safety Report 5105985-6 (Version None)
Quarter: 2006Q3

REPORT INFORMATION
  Report Type: 
  Country: None (occurrence: None)
  Receive Date: 20060912
  Receipt Date: 20060830
  Transmission Date: 20061208
  Serious: Yes (Other)
  Sender: FDA-Public Use
  Company Number: 2006106850

PATIENT
  Sex: Female
  Weight: 52.1637 kg

DRUGS (3)
  1. NEURONTIN [Suspect]
     Indication: DRUG USE FOR UNKNOWN INDICATION
  2. LYRICA [Suspect]
     Indication: DRUG USE FOR UNKNOWN INDICATION
     Dosage: 150 MG (50 MG, 3 IN 1 D), ORAL
     Route: 048
     Dates: start: 20060701, end: 20060807
  3. COUMADIN [Suspect]
     Indication: DRUG USE FOR UNKNOWN INDICATION
     Dosage: 5 MG

REACTIONS (14)
  - ANGER [None]
  - ARTHRALGIA [None]
  - ARTHRITIS [None]
  - CEREBROVASCULAR ACCIDENT [None]
  - CONTUSION [None]
  - CONVULSION [None]
  - FALL [None]
  - FATIGUE [None]
  - HAEMORRHAGIC DIATHESIS [None]
  - HEAD INJURY [None]
  - INJURY [None]
  - LACERATION [None]
  - SOMNOLENCE [None]
  - VASCULAR CALCIFICATION [None]
